FAERS Safety Report 6979692-9 (Version None)
Quarter: 2010Q3

REPORT INFORMATION
  Report Type: 
  Country: None (occurrence: None)
  Receive Date: 20100908
  Receipt Date: 20100825
  Transmission Date: 20110219
  Serious: Yes (Death, Hospitalization)
  Sender: FDA-Public Use
  Company Number: 1000015589

PATIENT
  Age: 42 Year
  Sex: Male
  Weight: 78 kg

DRUGS (6)
  1. ESCITAOPRAM (ESCITALOPRAM OXALATE) (TABLETS) [Suspect]
     Indication: GENERALISED ANXIETY DISORDER
     Dosage: 10 MG (10 MG, 1 IN 1 D), ORAL; 15 MG (15 MG, 1 IN 1 D), ORAL
     Route: 048
     Dates: start: 20100528, end: 20100627
  2. ESCITAOPRAM (ESCITALOPRAM OXALATE) (TABLETS) [Suspect]
     Indication: GENERALISED ANXIETY DISORDER
     Dosage: 10 MG (10 MG, 1 IN 1 D), ORAL; 15 MG (15 MG, 1 IN 1 D), ORAL
     Route: 048
     Dates: start: 20100628, end: 20100630
  3. BUSPAR [Concomitant]
  4. RISPERDAL [Concomitant]
  5. SPASMAG [Concomitant]
  6. UVEDOSE [Concomitant]

REACTIONS (3)
  - ANXIETY [None]
  - COMPLETED SUICIDE [None]
  - PSYCHOTIC DISORDER [None]
